FAERS Safety Report 4530940-4 (Version None)
Quarter: 2004Q4

REPORT INFORMATION
  Report Type: 
  Country: None (occurrence: None)
  Receive Date: 20041215
  Receipt Date: 20041203
  Transmission Date: 20050328
  Serious: Yes (Disabling)
  Sender: FDA-Public Use
  Company Number: 2004-03867

PATIENT
  Age: 67 Year
  Sex: Male

DRUGS (1)
  1. IMMUCYST (BCG - IT (CONNAUGHT)),AVENTIS PASTEUR LTD. [Suspect]
     Indication: BLADDER CANCER
     Dosage: 81.0 MG
     Route: 043
     Dates: start: 20040816, end: 20040913

REACTIONS (4)
  - ARTHRALGIA [None]
  - DRUG INEFFECTIVE [None]
  - INFLAMMATION [None]
  - MYALGIA [None]
